FAERS Safety Report 9743176 (Version 1)
Quarter: 2013Q4

REPORT INFORMATION
  Report Type: Spontaneous
  Country: US (occurrence: US)
  Receive Date: 20131210
  Receipt Date: 20131210
  Transmission Date: 20140711
  Serious: No
  Sender: FDA-Public Use
  Company Number: US-GILEAD-2009-0024917

PATIENT
  Age: 73 Year
  Sex: Male

DRUGS (8)
  1. LETAIRIS [Suspect]
     Indication: PULMONARY ARTERIAL HYPERTENSION
     Route: 048
     Dates: start: 20091009
  2. LIPITOR [Concomitant]
  3. DILTIAZEM [Concomitant]
  4. DILTIAZEM [Concomitant]
  5. ALLOPURINOL [Concomitant]
  6. FLOMAX [Concomitant]
  7. HYDRALAZINE [Concomitant]
  8. ASA LO-DOSE [Concomitant]

REACTIONS (1)
  - Nasal congestion [Not Recovered/Not Resolved]
